FAERS Safety Report 8428867-0 (Version None)
Quarter: 2012Q2

REPORT INFORMATION
  Report Type: 
  Country: None (occurrence: None)
  Receive Date: 20120612
  Receipt Date: 20120608
  Transmission Date: 20120825
  Serious: Yes (Life-Threatening)
  Sender: FDA-Public Use
  Company Number: IT-PFIZER INC-2012139432

PATIENT
  Age: 40 Year
  Sex: Male

DRUGS (8)
  1. RAMIPRIL [Concomitant]
     Dosage: 5 MG
     Route: 048
  2. HUMALOG [Suspect]
     Indication: SUICIDE ATTEMPT
     Dosage: 3 MG, TOTAL
     Route: 058
     Dates: start: 20120523, end: 20120523
  3. APIDRA [Suspect]
     Indication: SUICIDE ATTEMPT
     Dosage: 3 ML, TOTAL
     Route: 048
     Dates: start: 20120523, end: 20120523
  4. VALIUM [Suspect]
     Indication: SUICIDE ATTEMPT
     Dosage: 20 ML, TOTAL
     Route: 048
     Dates: start: 20120523, end: 20120523
  5. VALPROATE SODIUM [Suspect]
     Indication: SUICIDE ATTEMPT
     Dosage: 60 IU, TOTAL
     Route: 048
     Dates: start: 20120523, end: 20120523
  6. DULOXETINE HYDROCHLORIDE [Suspect]
     Indication: SUICIDE ATTEMPT
     Dosage: 56 IU, TOTAL
     Route: 048
     Dates: start: 20120523, end: 20120523
  7. LYRICA [Suspect]
     Indication: SUICIDE ATTEMPT
     Dosage: 14 IU, TOTAL
     Route: 048
     Dates: start: 20120523, end: 20120523
  8. TRAMADOL HCL [Suspect]
     Indication: SUICIDE ATTEMPT
     Dosage: 30 ML
     Route: 048
     Dates: start: 20120523, end: 20120523

REACTIONS (5)
  - SOMNOLENCE [None]
  - BRADYPHRENIA [None]
  - BRADYKINESIA [None]
  - HYPOTENSION [None]
  - HYPOGLYCAEMIA [None]
